FAERS Safety Report 7086046-6 (Version None)
Quarter: 2010Q4

REPORT INFORMATION
  Report Type: 
  Country: None (occurrence: None)
  Receive Date: 20101105
  Receipt Date: 20101102
  Transmission Date: 20110411
  Serious: Yes (Other)
  Sender: FDA-Public Use
  Company Number: A0889327A

PATIENT
  Age: 54 Year
  Sex: Female

DRUGS (4)
  1. PROMACTA [Suspect]
     Dosage: 25MG PER DAY
     Dates: start: 20100330, end: 20100406
  2. CORTICOSTEROIDS [Concomitant]
  3. IMMUNE GLOBULIN INTRAVENOUS (HUMAN) [Concomitant]
  4. RITUXIMAB [Concomitant]

REACTIONS (1)
  - SYNCOPE [None]
